FAERS Safety Report 22933156 (Version 3)
Quarter: 2025Q1

REPORT INFORMATION
  Report Type: Report from Study
  Country: JP (occurrence: JP)
  Receive Date: 20230912
  Receipt Date: 20250303
  Transmission Date: 20250408
  Serious: Yes (Other)
  Sender: ROCHE
  Company Number: JP-CHUGAI-2023019824AA

PATIENT
  Age: 77 Year
  Sex: Male
  Weight: 60.0 kg

DRUGS (29)
  1. POLIVY [Suspect]
     Active Substance: POLATUZUMAB VEDOTIN-PIIQ
     Indication: Diffuse large B-cell lymphoma
     Route: 042
  2. POLIVY [Suspect]
     Active Substance: POLATUZUMAB VEDOTIN-PIIQ
     Route: 042
  3. POLIVY [Suspect]
     Active Substance: POLATUZUMAB VEDOTIN-PIIQ
     Route: 042
  4. FILGRASTIM [Concomitant]
     Active Substance: FILGRASTIM
  5. FILGRASTIM [Concomitant]
     Active Substance: FILGRASTIM
  6. RITUXAN [Concomitant]
     Active Substance: RITUXIMAB
     Indication: Diffuse large B-cell lymphoma
     Route: 042
     Dates: start: 20230831, end: 20230831
  7. RITUXIMAB [Concomitant]
     Active Substance: RITUXIMAB
     Indication: Diffuse large B-cell lymphoma
     Route: 042
     Dates: start: 20230517, end: 20230517
  8. RITUXIMAB [Concomitant]
     Active Substance: RITUXIMAB
     Route: 042
     Dates: start: 20230608, end: 20230629
  9. RITUXIMAB [Concomitant]
     Active Substance: RITUXIMAB
     Route: 042
     Dates: start: 20230720
  10. CYCLOPHOSPHAMIDE [Concomitant]
     Active Substance: CYCLOPHOSPHAMIDE
     Indication: Diffuse large B-cell lymphoma
     Route: 042
     Dates: start: 20230518, end: 20230831
  11. DOXORUBICIN HYDROCHLORIDE [Concomitant]
     Active Substance: DOXORUBICIN HYDROCHLORIDE
     Indication: Diffuse large B-cell lymphoma
     Route: 042
     Dates: start: 20230518, end: 20230831
  12. PREDNISOLONE [Concomitant]
     Active Substance: PREDNISOLONE
     Indication: Diffuse large B-cell lymphoma
     Dosage: UNK
     Route: 048
     Dates: start: 20230518, end: 20230522
  13. PREDNISOLONE [Concomitant]
     Active Substance: PREDNISOLONE
     Route: 048
     Dates: start: 20230608, end: 20230612
  14. PREDNISOLONE [Concomitant]
     Active Substance: PREDNISOLONE
     Dates: start: 20230629, end: 20230703
  15. PREDNISOLONE [Concomitant]
     Active Substance: PREDNISOLONE
     Dates: start: 20230720, end: 20230724
  16. PREDNISOLONE [Concomitant]
     Active Substance: PREDNISOLONE
     Dates: start: 20230810, end: 20230814
  17. PREDNISOLONE [Concomitant]
     Active Substance: PREDNISOLONE
     Route: 048
     Dates: start: 20230831, end: 20230904
  18. METHOTREXATE [Concomitant]
     Active Substance: METHOTREXATE
     Dosage: 15MG/BODY/DAY
     Dates: start: 20230526, end: 20230526
  19. METHOTREXATE [Concomitant]
     Active Substance: METHOTREXATE
     Dosage: 15MG/BODY/DAY
     Dates: start: 20230609, end: 20230609
  20. METHOTREXATE [Concomitant]
     Active Substance: METHOTREXATE
     Dosage: 15MG/BODY/DAY
     Dates: start: 20230630, end: 20230630
  21. METHOTREXATE [Concomitant]
     Active Substance: METHOTREXATE
     Dosage: 15MG/BODY/DAY
     Dates: start: 20230721, end: 20230721
  22. CYTARABINE [Concomitant]
     Active Substance: CYTARABINE
     Dosage: 40MG/BODY/DAY
  23. CYTARABINE [Concomitant]
     Active Substance: CYTARABINE
     Dosage: 40MG/BODY/DAY
     Dates: start: 20230609, end: 20230609
  24. CYTARABINE [Concomitant]
     Active Substance: CYTARABINE
     Dosage: 40MG/BODY/DAY
     Dates: start: 20230630, end: 20230630
  25. CYTARABINE [Concomitant]
     Active Substance: CYTARABINE
     Dosage: 40MG/BODY/DAY
     Dates: start: 20230721, end: 20230721
  26. PREDONINE [Concomitant]
     Active Substance: PREDNISOLONE
     Dosage: 20MG/BODY/DAY
     Dates: start: 20230526, end: 20230526
  27. PREDONINE [Concomitant]
     Active Substance: PREDNISOLONE
     Dosage: 20MG/BODY/DAY
     Dates: start: 20230609, end: 20230609
  28. PREDONINE [Concomitant]
     Active Substance: PREDNISOLONE
     Dosage: 20MG/BODY/DAY
     Dates: start: 20230630, end: 20230630
  29. PREDONINE [Concomitant]
     Active Substance: PREDNISOLONE
     Dosage: 20MG/BODY/DAY
     Dates: start: 20230721, end: 20230721

REACTIONS (6)
  - Febrile neutropenia [Recovering/Resolving]
  - White blood cell count decreased [Recovering/Resolving]
  - Neutrophil count decreased [Recovering/Resolving]
  - Alanine aminotransferase increased [Recovering/Resolving]
  - Hypoalbuminaemia [Recovering/Resolving]
  - Decreased appetite [Recovering/Resolving]

NARRATIVE: CASE EVENT DATE: 20230518
